FAERS Safety Report 5084609-0 (Version None)
Quarter: 2006Q3

REPORT INFORMATION
  Report Type: 
  Country: None (occurrence: None)
  Receive Date: 20060821
  Receipt Date: 20060614
  Transmission Date: 20061208
  Serious: Yes (Other)
  Sender: FDA-Public Use
  Company Number: DE-GILEAD-2006-0009744

PATIENT
  Sex: Male
  Weight: 62 kg

DRUGS (3)
  1. VIREAD [Suspect]
     Indication: HIV INFECTION
     Route: 048
     Dates: start: 20011013
  2. KALETRA [Concomitant]
     Indication: HIV INFECTION
     Dates: start: 20011201
  3. RESCRIPTOR [Concomitant]
     Indication: HIV INFECTION
     Route: 048
     Dates: start: 20011201

REACTIONS (5)
  - ANKLE FRACTURE [None]
  - AORTIC STENOSIS [None]
  - BLOOD PHOSPHORUS DECREASED [None]
  - OSTEOPOROSIS [None]
  - RENAL FAILURE [None]
